FAERS Safety Report 5586398-X (Version None)
Quarter: 2008Q1

REPORT INFORMATION
  Report Type: 
  Country: None (occurrence: None)
  Receive Date: 20080110
  Receipt Date: 20080104
  Transmission Date: 20080703
  Serious: Yes (Hospitalization)
  Sender: FDA-Public Use
  Company Number: PHNU2008DE00468

PATIENT
  Age: 69 Year
  Sex: Male

DRUGS (3)
  1. ZOMETA [Suspect]
     Indication: PROSTATE CANCER
     Dosage: 4 MG, UNK
     Route: 042
     Dates: start: 20070604
  2. ENANTONE [Concomitant]
     Indication: PROSTATE CANCER
     Dates: end: 20071101
  3. CASODEX [Concomitant]
     Indication: PROSTATE CANCER
     Dates: end: 20071101

REACTIONS (1)
  - CATARACT [None]
